FAERS Safety Report 17173860 (Version 4)
Quarter: 2020Q1

REPORT INFORMATION
  Report Type: Spontaneous
  Country: US (occurrence: US)
  Receive Date: 20191219
  Receipt Date: 20200218
  Transmission Date: 20200409
  Serious: No
  Sender: FDA-Public Use
  Company Number: US-PFIZER INC-2019543898

PATIENT
  Age: 69 Year
  Sex: Female
  Weight: 70.3 kg

DRUGS (3)
  1. PREMARIN [Suspect]
     Active Substance: ESTROGENS, CONJUGATED
     Indication: MENOPAUSAL SYMPTOMS
     Dosage: UNK
     Dates: start: 201910
  2. PAXIL [PIROXICAM] [Concomitant]
     Active Substance: PIROXICAM
     Indication: DEPRESSION
     Dosage: 20 MG, UNK
     Dates: start: 1994
  3. BUSPAR [Concomitant]
     Active Substance: BUSPIRONE HYDROCHLORIDE
     Indication: ANXIETY
     Dosage: UNK, 2X/DAY (7.5/ TWICE A DAY)
     Dates: start: 2005

REACTIONS (2)
  - Therapeutic product effect incomplete [Not Recovered/Not Resolved]
  - Irritability [Recovered/Resolved]

NARRATIVE: CASE EVENT DATE: 2019
